FAERS Safety Report 12094143 (Version 1)
Quarter: 2016Q1

REPORT INFORMATION
  Report Type: Spontaneous
  Country: US (occurrence: US)
  Receive Date: 20160219
  Receipt Date: 20160219
  Transmission Date: 20160526
  Serious: No
  Sender: FDA-Public Use
  Company Number: US-SHIRE-US201601902

PATIENT
  Sex: Female
  Weight: 67.57 kg

DRUGS (3)
  1. PENTASA [Suspect]
     Active Substance: MESALAMINE
     Dosage: 1000 MG (TWO 500 MG CAPSULES), 4X/DAY:QID
     Route: 048
     Dates: start: 201509, end: 201511
  2. PENTASA [Suspect]
     Active Substance: MESALAMINE
     Dosage: 500 MG, 4X/DAY:QID
     Route: 048
     Dates: start: 201601
  3. PENTASA [Suspect]
     Active Substance: MESALAMINE
     Indication: CROHN^S DISEASE
     Dosage: 2000 MG (FOUR 500 MG CAPSULES), 4X/DAY:QID
     Route: 048
     Dates: start: 1996, end: 201509

REACTIONS (6)
  - Hypertension [Unknown]
  - Stress [Not Recovered/Not Resolved]
  - Prescribed overdose [Recovered/Resolved]
  - Incorrect dose administered [Not Recovered/Not Resolved]
  - Insomnia [Not Recovered/Not Resolved]
  - Product use issue [Not Recovered/Not Resolved]

NARRATIVE: CASE EVENT DATE: 1996
